FAERS Safety Report 21255406 (Version 2)
Quarter: 2022Q3

REPORT INFORMATION
  Report Type: Spontaneous
  Country: US (occurrence: US)
  Receive Date: 20220825
  Receipt Date: 20220916
  Transmission Date: 20221027
  Serious: Yes (Hospitalization)
  Sender: FDA-Public Use
  Company Number: US-TEVA-2022-US-2066555

PATIENT
  Age: 30 Year
  Sex: Female

DRUGS (6)
  1. LINEZOLID [Suspect]
     Active Substance: LINEZOLID
     Indication: Mycobacterium abscessus infection
     Route: 042
  2. ERAVACYCLINE [Suspect]
     Active Substance: ERAVACYCLINE
     Indication: Mycobacterium abscessus infection
     Route: 042
  3. CEFEPIME [Suspect]
     Active Substance: CEFEPIME HYDROCHLORIDE
     Indication: Pseudomonas infection
     Route: 042
  4. AZITHROMYCIN [Suspect]
     Active Substance: AZITHROMYCIN
     Indication: Mycobacterium abscessus infection
     Route: 042
  5. MINOCYCLINE [Concomitant]
     Active Substance: MINOCYCLINE HYDROCHLORIDE
     Indication: Vascular device infection
     Route: 048
  6. TEDIZOLID [Concomitant]
     Active Substance: TEDIZOLID
     Indication: Vascular device infection
     Route: 048

REACTIONS (4)
  - Thrombocytopenia [Unknown]
  - Lactic acidosis [Unknown]
  - Hypertransaminasaemia [Unknown]
  - Drug ineffective [Unknown]
